FAERS Safety Report 8509900-4 (Version None)
Quarter: 2012Q3

REPORT INFORMATION
  Report Type: 
  Country: None (occurrence: None)
  Receive Date: 20120713
  Receipt Date: 20120703
  Transmission Date: 20120928
  Serious: No
  Sender: FDA-Public Use
  Company Number: US-JNJFOC-20120400246

PATIENT
  Sex: Female
  Weight: 52.62 kg

DRUGS (4)
  1. PROBIOTIC [Concomitant]
     Route: 065
  2. LIALDA [Concomitant]
     Route: 065
  3. REMICADE [Suspect]
     Indication: COLITIS ULCERATIVE
     Route: 042
     Dates: start: 20110922
  4. VITAMIN D [Concomitant]
     Route: 065

REACTIONS (4)
  - DRUG LEVEL INCREASED [None]
  - URINARY TRACT INFECTION [None]
  - SINUSITIS [None]
  - FUNGAL INFECTION [None]
